FAERS Safety Report 10236261 (Version 1)
Quarter: 2014Q2

REPORT INFORMATION
  Report Type: Spontaneous
  Country: US (occurrence: None)
  Receive Date: 20140612
  Receipt Date: 20140612
  Transmission Date: 20141212
  Serious: No
  Sender: FDA-Public Use
  Company Number: None

PATIENT
  Age: 29 Year
  Sex: Male

DRUGS (7)
  1. DULOXETINE [Suspect]
     Indication: ANXIETY
     Dosage: 1 CAP  QHS/BEDTIME ORAL
     Route: 048
     Dates: start: 20140531, end: 20140611
  2. ADDERALL XR [Concomitant]
  3. CIALIS [Concomitant]
  4. TRILEPTAL [Concomitant]
  5. KLONOPIN [Concomitant]
  6. STRATTERA [Concomitant]
  7. PEPTO-BISMOL [Concomitant]

REACTIONS (2)
  - Urticaria [None]
  - Product substitution issue [None]
